FAERS Safety Report 8960359 (Version 2)
Quarter: 2013Q1

REPORT INFORMATION
  Report Type: Spontaneous
  Country: US (occurrence: US)
  Receive Date: 20121211
  Receipt Date: 20130117
  Transmission Date: 20140127
  Serious: Yes (Hospitalization)
  Sender: FDA-Public Use
  Company Number: US-US-EMD SERONO, INC.-7180275

PATIENT
  Sex: Female

DRUGS (10)
  1. REBIF [Suspect]
     Indication: MULTIPLE SCLEROSIS
     Route: 058
     Dates: start: 200207, end: 2004
  2. REBIF [Suspect]
     Route: 058
  3. REBIF [Suspect]
     Route: 058
  4. TYLENOL [Concomitant]
     Indication: PREMEDICATION
     Dosage: TAKES 2 BEFORE REBIF
  5. DETROL [Concomitant]
     Indication: BLADDER DISORDER
  6. BACTRIM [Concomitant]
     Indication: CYSTITIS
  7. ZOLPIDEM [Concomitant]
     Indication: INSOMNIA
  8. AMITRIPTYLINE [Concomitant]
     Indication: INSOMNIA
  9. XANAX [Concomitant]
     Indication: INSOMNIA
  10. NOVANTRONE [Concomitant]
     Indication: MULTIPLE SCLEROSIS
     Dates: start: 2004, end: 2005

REACTIONS (2)
  - Subdural haematoma [Recovered/Resolved]
  - Fall [Recovered/Resolved]
